FAERS Safety Report 8613424-3 (Version None)
Quarter: 2012Q3

REPORT INFORMATION
  Report Type: 
  Country: None (occurrence: None)
  Receive Date: 20120822
  Receipt Date: 20120807
  Transmission Date: 20120928
  Serious: Yes (Other)
  Sender: FDA-Public Use
  Company Number: JP-009507513-1207JPN001482

PATIENT

DRUGS (15)
  1. ROCURONIUM BROMIDE [Concomitant]
     Indication: NEUROMUSCULAR BLOCKING THERAPY
     Route: 042
  2. SUGAMMADEX SODIUM [Suspect]
     Indication: NEUROMUSCULAR BLOCKADE REVERSAL
     Route: 042
     Dates: start: 20120629, end: 20120629
  3. DOPAMINE HYDROCHLORIDE [Concomitant]
     Dosage: DOSAGE IS UNCERTAIN DURING A DAY.
     Route: 065
     Dates: start: 20120629, end: 20120629
  4. HEPARIN SODIUM [Concomitant]
     Dosage: DOSAGE IS UNCERTAIN DURING A DAY.
     Route: 065
     Dates: start: 20120629, end: 20120629
  5. ALPROSTADIL [Concomitant]
     Dosage: DOSAGE IS UNCERTAIN DURING A DAY.
     Route: 065
     Dates: start: 20120629, end: 20120629
  6. LANSOPRAZOLE [Concomitant]
     Dosage: DOSAGE IS UNCERTAIN DURING A DAY.
     Route: 048
  7. LIPITOR [Concomitant]
     Dosage: DOSAGE IS UNCERTAIN DURING A DAY.
     Route: 048
  8. NICARDIPINE HCL [Concomitant]
     Dosage: DOSAGE IS UNCERTAIN DURING A DAY.
     Route: 065
     Dates: start: 20120629, end: 20120629
  9. ATELEC [Concomitant]
     Dosage: DOSAGE IS UNCERTAIN DURING A DAY.
     Route: 048
  10. MAGLAX (MAGNESIUM OXIDE) [Concomitant]
     Dosage: DOSAGE IS UNCERTAIN DURING A DAY.
     Route: 048
  11. [THERAPY UNSPECIFIED] [Concomitant]
     Dosage: DOSAGE IS UNCERTAIN DURING A DAY.
     Route: 048
  12. LASIX [Concomitant]
     Dosage: DOSAGE IS UNCERTAIN DURING A DAY.
     Route: 048
  13. OLMESARTAN MEDOXOMIL [Concomitant]
     Dosage: DOSAGE IS UNCERTAIN DURING A DAY.
     Route: 048
  14. SIGMART [Concomitant]
     Dosage: DOSAGE IS UNCERTAIN DURING A DAY.
     Route: 065
     Dates: start: 20120629, end: 20120629
  15. EPLERENONE [Concomitant]
     Dosage: DOSAGE IS UNCERTAIN DURING A DAY.
     Route: 048

REACTIONS (5)
  - ERYTHEMA [None]
  - CARDIAC ARREST [None]
  - URTICARIA [None]
  - ANAPHYLACTOID REACTION [None]
  - BLOOD PRESSURE DECREASED [None]
